FAERS Safety Report 9162379 (Version 1)
Quarter: 2013Q1

REPORT INFORMATION
  Report Type: Spontaneous
  Country: US (occurrence: US)
  Receive Date: 20130314
  Receipt Date: 20130314
  Transmission Date: 20140127
  Serious: Yes (Other)
  Sender: FDA-Public Use
  Company Number: US-ASTELLAS-2013US002721

PATIENT
  Age: 62 Year
  Sex: Male

DRUGS (1)
  1. PROGRAF [Suspect]
     Indication: RENAL TRANSPLANT
     Dosage: 3.5 MG, UID/QD
     Route: 048
     Dates: start: 20120117

REACTIONS (3)
  - Haemoglobin increased [Unknown]
  - Pollakiuria [Unknown]
  - Diarrhoea [Recovered/Resolved]
